FAERS Safety Report 4619410-2 (Version None)
Quarter: 2005Q2

REPORT INFORMATION
  Report Type: 
  Country: None (occurrence: None)
  Receive Date: 20050321
  Receipt Date: 20040505
  Transmission Date: 20051028
  Serious: Yes (Hospitalization)
  Sender: FDA-Public Use
  Company Number: 2004-05-0234

PATIENT
  Age: 49 Year
  Sex: Female
  Weight: 57.6068 kg

DRUGS (6)
  1. PEG-INTRON [Suspect]
     Indication: HEPATITIS C
     Dosage: SUBCUTANEOUS
     Route: 058
     Dates: start: 20040420
  2. REBETOL [Suspect]
     Indication: HEPATITIS C
     Dosage: ORAL
     Route: 048
     Dates: start: 20040420
  3. AMBIEN [Concomitant]
  4. PREVACID [Concomitant]
  5. WELLBUTRIN [Concomitant]
  6. ATIVAN [Concomitant]

REACTIONS (1)
  - PANCREATITIS ACUTE [None]
